FAERS Safety Report 20730651 (Version 1)
Quarter: 2022Q2

REPORT INFORMATION
  Report Type: Spontaneous
  Country: US (occurrence: US)
  Receive Date: 20220420
  Receipt Date: 20220420
  Transmission Date: 20220721
  Serious: No
  Sender: FDA-Public Use
  Company Number: US-ASTELLAS-2022US012317

PATIENT
  Age: 88 Year
  Sex: Female

DRUGS (4)
  1. LEXISCAN [Suspect]
     Active Substance: REGADENOSON
     Indication: Scan myocardial perfusion
     Dosage: 0.4 MG, UNKNOWN FREQ. (10-15 SECONDS (WAS OVER 10 SECONDS)
     Route: 042
     Dates: start: 20220331
  2. LEXISCAN [Suspect]
     Active Substance: REGADENOSON
     Indication: Scan myocardial perfusion
     Dosage: 0.4 MG, UNKNOWN FREQ. (10-15 SECONDS (WAS OVER 10 SECONDS)
     Route: 042
     Dates: start: 20220331
  3. LEXISCAN [Suspect]
     Active Substance: REGADENOSON
     Indication: Scan myocardial perfusion
     Dosage: 0.4 MG, UNKNOWN FREQ. (10-15 SECONDS (WAS OVER 10 SECONDS)
     Route: 042
     Dates: start: 20220331
  4. LEXISCAN [Suspect]
     Active Substance: REGADENOSON
     Indication: Scan myocardial perfusion
     Dosage: 0.4 MG, UNKNOWN FREQ. (10-15 SECONDS (WAS OVER 10 SECONDS)
     Route: 042
     Dates: start: 20220331

REACTIONS (3)
  - Bradyarrhythmia [Recovered/Resolved]
  - Hypotension [Recovered/Resolved]
  - Incorrect product administration duration [Unknown]

NARRATIVE: CASE EVENT DATE: 20220331
